FAERS Safety Report 8619856-1 (Version None)
Quarter: 2012Q3

REPORT INFORMATION
  Report Type: 
  Country: None (occurrence: None)
  Receive Date: 20120824
  Receipt Date: 20120815
  Transmission Date: 20120928
  Serious: Yes (Disabling, Other)
  Sender: FDA-Public Use
  Company Number: US-009507513-1206USA04634

PATIENT

DRUGS (5)
  1. FOSAMAX [Suspect]
     Dosage: 40 MG, QW
  2. BONIVA [Suspect]
     Route: 042
  3. FOSAMAX [Suspect]
     Indication: OSTEOPOROSIS
     Dosage: 10 MG, QD
     Route: 048
     Dates: start: 19990101
  4. FOSAMAX [Suspect]
     Dosage: 70 MG, QW
     Route: 048
     Dates: start: 20000812, end: 20060101
  5. FOSAMAX PLUS D [Suspect]
     Dosage: 70MG/2800IU
     Dates: start: 20070401, end: 20070920

REACTIONS (18)
  - OSTEONECROSIS OF JAW [None]
  - HIATUS HERNIA [None]
  - GASTROOESOPHAGEAL REFLUX DISEASE [None]
  - TIBIA FRACTURE [None]
  - LOW TURNOVER OSTEOPATHY [None]
  - FRACTURE [None]
  - DRUG ADMINISTRATION ERROR [None]
  - DEPRESSION [None]
  - ANXIETY DISORDER [None]
  - FIBULA FRACTURE [None]
  - FEMUR FRACTURE [None]
  - OSTEOPOROSIS [None]
  - FOOT FRACTURE [None]
  - THROMBOPHLEBITIS SUPERFICIAL [None]
  - MITRAL VALVE PROLAPSE [None]
  - RIB FRACTURE [None]
  - BASAL CELL CARCINOMA [None]
  - ABDOMINAL ABSCESS [None]
